FAERS Safety Report 8428546-X (Version None)
Quarter: 2012Q2

REPORT INFORMATION
  Report Type: 
  Country: None (occurrence: None)
  Receive Date: 20120606
  Receipt Date: 20120606
  Transmission Date: 20120825
  Serious: No
  Sender: FDA-Public Use
  Company Number: None

PATIENT
  Age: 84 Year
  Sex: Female
  Weight: 58.514 kg

DRUGS (1)
  1. RITUXIMAB 10MG/ML GENENTECH [Suspect]
     Indication: LYMPHOMA
     Dosage: 590MG X1 IV
     Route: 042
     Dates: start: 20120517, end: 20120517

REACTIONS (2)
  - INFUSION RELATED REACTION [None]
  - DYSPNOEA [None]
